FAERS Safety Report 5355584-6 (Version None)
Quarter: 2007Q2

REPORT INFORMATION
  Report Type: 
  Country: None (occurrence: None)
  Receive Date: 20070613
  Receipt Date: 20070607
  Transmission Date: 20071010
  Serious: Yes (Other)
  Sender: FDA-Public Use
  Company Number: A0649717A

PATIENT
  Age: 15 Year
  Sex: Female
  Weight: 47.7 kg

DRUGS (2)
  1. LAMICTAL [Suspect]
     Dosage: 100MG PER DAY
     Route: 048
     Dates: end: 20070501
  2. NO CONCURRENT MEDICATION [Concomitant]

REACTIONS (4)
  - BLINDNESS UNILATERAL [None]
  - RETINAL DISORDER [None]
  - RETINOPATHY SOLAR [None]
  - VISION BLURRED [None]
